FAERS Safety Report 24748925 (Version 1)
Quarter: 2024Q4

REPORT INFORMATION
  Report Type: Spontaneous
  Country: JP (occurrence: JP)
  Receive Date: 20241218
  Receipt Date: 20241218
  Transmission Date: 20250115
  Serious: Yes (Hospitalization)
  Sender: CARA THERAPEUTICS
  Company Number: JP-CARA THERAPEUTICS, INC.-2024-00551-JP

PATIENT
  Age: 57 Year
  Sex: Male

DRUGS (1)
  1. KORSUVA [Suspect]
     Active Substance: DIFELIKEFALIN ACETATE
     Indication: Pruritus
     Dosage: (42.5 ?G/ )
     Route: 042
     Dates: start: 20240628

REACTIONS (4)
  - Hospitalisation [Unknown]
  - Pruritus [Unknown]
  - Skin ulcer [Unknown]
  - Arrhythmia [Unknown]
